FAERS Safety Report 18092275 (Version 4)
Quarter: 2020Q4

REPORT INFORMATION
  Report Type: Other
  Country: US (occurrence: US)
  Receive Date: 20200730
  Receipt Date: 20201025
  Transmission Date: 20210113
  Serious: Yes (Hospitalization, Other)
  Sender: FDA-Public Use
  Company Number: US-ROCHE-2647566

PATIENT
  Sex: Male

DRUGS (14)
  1. SODIUM CHLORIDE. [Concomitant]
     Active Substance: SODIUM CHLORIDE
     Dosage: 1 SPRAY
     Route: 045
     Dates: start: 20200715
  2. CELECOXIB. [Concomitant]
     Active Substance: CELECOXIB
     Route: 048
     Dates: start: 20200123
  3. ESBRIET [Suspect]
     Active Substance: PIRFENIDONE
     Indication: IDIOPATHIC PULMONARY FIBROSIS
     Route: 048
     Dates: start: 20200330
  4. ESBRIET [Suspect]
     Active Substance: PIRFENIDONE
     Dosage: WITH MEALS
     Route: 048
  5. DORZOLAMIDE [Concomitant]
     Active Substance: DORZOLAMIDE
     Dosage: ONE DROP INTO THE RIGHT EYE THREE TIMES A DAY
     Route: 047
  6. KETOROLAC [Concomitant]
     Active Substance: KETOROLAC TROMETHAMINE
     Dosage: ONE DROP INTO THE LEFT EYE THREE TIMES A DAY
     Route: 047
  7. PANTOPRAZOLE [Concomitant]
     Active Substance: PANTOPRAZOLE
     Route: 048
     Dates: start: 20190301
  8. ATORVASTATIN [Concomitant]
     Active Substance: ATORVASTATIN
     Dosage: AT BEDTIME
     Route: 048
     Dates: start: 20200716
  9. PREDNISOLONE ACETATE. [Concomitant]
     Active Substance: PREDNISOLONE ACETATE
     Dosage: ADMINISTER ONE DROP IN THE LEFT EYE?AFTER BREAKFAST AND LUNCH
     Route: 047
     Dates: start: 20200330
  10. SENNA [Concomitant]
     Active Substance: SENNA LEAF\SENNOSIDES\SENNOSIDES A AND B
     Indication: CONSTIPATION
     Route: 048
     Dates: start: 20200715
  11. METOPROLOL TARTRATE. [Concomitant]
     Active Substance: METOPROLOL TARTRATE
     Route: 048
     Dates: start: 20200715
  12. MUPIROCIN. [Concomitant]
     Active Substance: MUPIROCIN
     Dosage: 2 % TOPICAL OINTMENT, DILUTE ONE INCH OF BACTROBAN OINTMENT INTO 8 OZ SALINE FILLED NEIL MED BOTTLE
     Route: 061
     Dates: start: 20200724
  13. LANSOPRAZOLE. [Concomitant]
     Active Substance: LANSOPRAZOLE
     Dosage: BEFORE BREAKFAST
     Route: 048
     Dates: start: 20200716
  14. TAMSULOSIN [Concomitant]
     Active Substance: TAMSULOSIN
     Dosage: AT BEDTIME
     Route: 048

REACTIONS (8)
  - Mass [Unknown]
  - Pneumocephalus [Unknown]
  - Sinusitis fungal [Unknown]
  - Weight increased [Unknown]
  - Cerebral disorder [Unknown]
  - Carpal tunnel syndrome [Unknown]
  - Dyspnoea [Unknown]
  - Cerebrospinal fluid leakage [Unknown]
